FAERS Safety Report 25518600 (Version 1)
Quarter: 2025Q3

REPORT INFORMATION
  Report Type: Spontaneous
  Country: US (occurrence: US)
  Receive Date: 20250704
  Receipt Date: 20250704
  Transmission Date: 20251020
  Serious: Yes (Hospitalization)
  Sender: CHEPLAPHARM
  Company Number: US-ROCHE-3135219

PATIENT
  Sex: Male
  Weight: 77.11 kg

DRUGS (19)
  1. CLONAZEPAM [Suspect]
     Active Substance: CLONAZEPAM
     Indication: Product used for unknown indication
     Route: 048
  2. CLONAZEPAM [Suspect]
     Active Substance: CLONAZEPAM
     Indication: Product used for unknown indication
     Route: 048
  3. CELLCEPT [Suspect]
     Active Substance: MYCOPHENOLATE MOFETIL
     Indication: Renal transplant
     Route: 048
     Dates: start: 20210503
  4. CELLCEPT [Suspect]
     Active Substance: MYCOPHENOLATE MOFETIL
     Indication: Renal transplant
     Route: 048
     Dates: start: 20220707
  5. DIAZEPAM [Suspect]
     Active Substance: DIAZEPAM
     Indication: Product used for unknown indication
     Route: 048
  6. ASPIRIN [Concomitant]
     Active Substance: ASPIRIN
     Dosage: DAILY DOSE: 1 DOSAGE FORM
     Route: 048
     Dates: start: 20180326
  7. ATORVASTATIN [Concomitant]
     Active Substance: ATORVASTATIN
     Dosage: DAILY AT BEDTIME?DAILY DOSE: 1 DOSAGE FORM
     Route: 048
     Dates: start: 20190619
  8. DONEPEZIL [Concomitant]
     Active Substance: DONEPEZIL
     Dosage: DAILY IN THE EVENING?DAILY DOSE: 1 DOSAGE FORM
     Route: 048
     Dates: start: 20180326
  9. LASIX [Concomitant]
     Active Substance: FUROSEMIDE
     Dosage: 1 TAB IN AM AND 1/2 TAB IN PM?DAILY DOSE: 1.5 DOSAGE FORM
     Route: 048
     Dates: start: 20190226
  10. LISINOPRIL [Concomitant]
     Active Substance: LISINOPRIL
     Dosage: DAILY DOSE: 1 DOSAGE FORM
     Route: 048
     Dates: start: 20180326
  11. POTASSIUM CHLORIDE [Concomitant]
     Active Substance: POTASSIUM CHLORIDE
     Route: 048
     Dates: start: 20190619
  12. ROPINIROLE [Concomitant]
     Active Substance: ROPINIROLE
     Route: 048
  13. AMLODIPINE [Concomitant]
     Active Substance: AMLODIPINE BESYLATE
     Dosage: DAILY DOSE: 1 DOSAGE FORM
     Route: 048
     Dates: start: 20180326
  14. CARVEDILOL [Concomitant]
     Active Substance: CARVEDILOL
     Dates: start: 20210503
  15. CLONIDINE HYDROCHLORIDE [Concomitant]
     Active Substance: CLONIDINE HYDROCHLORIDE
     Route: 048
     Dates: start: 20210503
  16. DULOXETINE [Concomitant]
     Active Substance: DULOXETINE
     Route: 048
     Dates: start: 20210503
  17. LAMOTRIGINE [Concomitant]
     Active Substance: LAMOTRIGINE
     Dosage: 1 TABLET IN THE MORNING AND 2 TABLETS IN THE EVENING?DAILY DOSE: 3 DOSAGE FORM
     Dates: start: 20210503
  18. PREDNISONE [Concomitant]
     Active Substance: PREDNISONE
     Dosage: DAILY DOSE: 1 DOSAGE FORM
     Route: 048
     Dates: start: 20200630
  19. ALLOPURINOL [Concomitant]
     Active Substance: ALLOPURINOL
     Dosage: DAILY DOSE: 100 MILLIGRAM
     Route: 048
     Dates: start: 20180326

REACTIONS (8)
  - COVID-19 [Unknown]
  - Pancytopenia [Unknown]
  - Aortic aneurysm [Unknown]
  - Bronchitis [Unknown]
  - Back pain [Unknown]
  - Muscle spasms [Unknown]
  - Oedema [Unknown]
  - Hypertension [Unknown]

NARRATIVE: CASE EVENT DATE: 20250313
